FAERS Safety Report 8112358-0 (Version None)
Quarter: 2012Q1

REPORT INFORMATION
  Report Type: 
  Country: None (occurrence: None)
  Receive Date: 20120203
  Receipt Date: 20120201
  Transmission Date: 20120608
  Serious: Yes (Life-Threatening)
  Sender: FDA-Public Use
  Company Number: DE-B.I. PHARMACEUTICALS,INC./RIDGEFIELD-2012-DE-00348DE

PATIENT
  Sex: Female
  Weight: 80 kg

DRUGS (6)
  1. PRADAXA [Suspect]
     Dosage: 220 MG
     Dates: start: 20111019
  2. SPIRONOLACTON 50/20 [Concomitant]
     Dosage: 1 ANZ
  3. RAMIPRIL 5/25 [Concomitant]
     Dosage: 0.5 ANZ
  4. LOESFERRON [Concomitant]
     Dosage: 0.5 ANZ
  5. PANTOPRAZOL 20 [Concomitant]
     Dosage: 1 ANZ
  6. METOPROLOL SUCC 47.5 [Concomitant]
     Dosage: 1 ANZ

REACTIONS (2)
  - MALAISE [None]
  - HAEMOGLOBIN DECREASED [None]
